FAERS Safety Report 9086091 (Version 1)
Quarter: 2013Q1

REPORT INFORMATION
  Report Type: Report from Study
  Country: US (occurrence: US)
  Receive Date: 20130131
  Receipt Date: 20130131
  Transmission Date: 20140127
  Serious: No
  Sender: FDA-Public Use
  Company Number: US-ABBOTT-12P-163-1010715-00

PATIENT
  Age: 39 Year
  Sex: Female
  Weight: 67.19 kg

DRUGS (7)
  1. HUMIRA [Suspect]
     Indication: RHEUMATOID ARTHRITIS
     Dates: start: 2011
  2. METHOTREXATE [Concomitant]
     Indication: RHEUMATOID ARTHRITIS
  3. FOLIC ACID [Concomitant]
     Indication: PRODUCT USED FOR UNKNOWN INDICATION
  4. PREDNISONE [Concomitant]
     Indication: RHEUMATOID ARTHRITIS
     Dates: start: 2002
  5. LUTERA [Concomitant]
     Indication: CONTRACEPTION
  6. ALENDRONATE [Concomitant]
     Indication: OSTEOPOROSIS
  7. MULTIVITAMIN [Concomitant]
     Indication: PRODUCT USED FOR UNKNOWN INDICATION

REACTIONS (5)
  - Back pain [Recovered/Resolved]
  - Neck pain [Recovered/Resolved]
  - Pain of skin [Recovered/Resolved]
  - Pain of skin [Recovered/Resolved]
  - Back pain [Recovered/Resolved]
